FAERS Safety Report 21556745 (Version 3)
Quarter: 2023Q2

REPORT INFORMATION
  Report Type: Spontaneous
  Country: US (occurrence: US)
  Receive Date: 20221104
  Receipt Date: 20230411
  Transmission Date: 20230721
  Serious: No
  Sender: FDA-Public Use
  Company Number: US-PFIZER INC-PV202200097060

PATIENT
  Age: 49 Year
  Sex: Female

DRUGS (1)
  1. IBRANCE [Suspect]
     Active Substance: PALBOCICLIB
     Dosage: UNK

REACTIONS (6)
  - Nausea [Unknown]
  - Fatigue [Unknown]
  - Brain fog [Unknown]
  - Aphasia [Unknown]
  - Gastrooesophageal reflux disease [Unknown]
  - Coronavirus infection [Unknown]
